FAERS Safety Report 5894104-4 (Version None)
Quarter: 2008Q3

REPORT INFORMATION
  Report Type: 
  Country: None (occurrence: None)
  Receive Date: 20080923
  Receipt Date: 20080102
  Transmission Date: 20090109
  Serious: No
  Sender: FDA-Public Use
  Company Number: US-ASTRAZENECA-2008UW00129

PATIENT
  Age: 52 Year
  Sex: Male
  Weight: 117.9 kg

DRUGS (6)
  1. SEROQUEL [Suspect]
     Indication: INSOMNIA
     Route: 048
  2. SEROQUEL [Suspect]
     Route: 048
  3. CRESTOR [Concomitant]
  4. XANAX [Concomitant]
  5. NAMENDA [Concomitant]
  6. PAXEVA [Concomitant]

REACTIONS (2)
  - DISORIENTATION [None]
  - SOMNOLENCE [None]
